FAERS Safety Report 22867789 (Version 2)
Quarter: 2023Q4

REPORT INFORMATION
  Report Type: Report from Study
  Country: US (occurrence: US)
  Receive Date: 20230825
  Receipt Date: 20231219
  Transmission Date: 20240110
  Serious: Yes (Hospitalization)
  Sender: FDA-Public Use
  Company Number: US-JAZZ PHARMACEUTICALS-2023-US-017713

PATIENT
  Age: 17 Year
  Sex: Male

DRUGS (3)
  1. EPIDIOLEX [Suspect]
     Active Substance: CANNABIDIOL
     Indication: Seizure
     Dosage: UNK
  2. DEPAKOTE [Concomitant]
     Active Substance: DIVALPROEX SODIUM
     Indication: Product used for unknown indication
     Dosage: UNK
  3. MEDROXYPROGESTERONE ACETATE F [Concomitant]
     Indication: Product used for unknown indication
     Dosage: UNK

REACTIONS (3)
  - Hospitalisation [Unknown]
  - Generalised tonic-clonic seizure [Unknown]
  - Fatigue [Unknown]
